FAERS Safety Report 4883051-2 (Version None)
Quarter: 2006Q1

REPORT INFORMATION
  Report Type: 
  Country: None (occurrence: None)
  Receive Date: 20060113
  Receipt Date: 20051221
  Transmission Date: 20060701
  Serious: Yes (Hospitalization)
  Sender: FDA-Public Use
  Company Number: JP200511003455

PATIENT
  Age: 75 Year
  Sex: Female

DRUGS (4)
  1. EVISTA [Suspect]
     Indication: OSTEOPOROSIS POSTMENOPAUSAL
     Dosage: 60 MG, DAILY (1/D), ORAL
     Route: 048
     Dates: start: 20051129, end: 20051129
  2. ONE-ALPHA (ALFACALCIDOL) [Concomitant]
  3. ASPARA-CA                (ASPARATATE CALCIUM) TABLET [Concomitant]
  4. MOHRUS          (KETOPROFEN) [Concomitant]

REACTIONS (10)
  - DISCOMFORT [None]
  - DIZZINESS [None]
  - ERYTHEMA [None]
  - FALL [None]
  - HEART RATE IRREGULAR [None]
  - HYPOTENSION [None]
  - PALLOR [None]
  - URTICARIA [None]
  - VENTRICULAR EXTRASYSTOLES [None]
  - VOMITING [None]
